FAERS Safety Report 8974694 (Version 1)
Quarter: 2012Q4

REPORT INFORMATION
  Report Type: Spontaneous
  Country: US (occurrence: None)
  Receive Date: 20121217
  Receipt Date: 20121217
  Transmission Date: 20130627
  Serious: Yes (Other)
  Sender: FDA-Public Use
  Company Number: None

PATIENT
  Age: 74 Year
  Sex: Male
  Weight: 54.43 kg

DRUGS (1)
  1. PRAMIPEXOLE [Suspect]
     Indication: PARKINSON^S DISEASE
     Dosage: 1/2 pill  3 times daily po
     Route: 048
     Dates: start: 20121210, end: 20121211

REACTIONS (3)
  - Cold sweat [None]
  - Lethargy [None]
  - Gait disturbance [None]
